FAERS Safety Report 4683042-0 (Version None)
Quarter: 2005Q2

REPORT INFORMATION
  Report Type: 
  Country: None (occurrence: None)
  Receive Date: 20050606
  Receipt Date: 20050310
  Transmission Date: 20051028
  Serious: Yes (Hospitalization, Disabling)
  Sender: FDA-Public Use
  Company Number: US-MERCK-0503USA02033

PATIENT
  Age: 63 Year
  Sex: Male
  Weight: 97 kg

DRUGS (6)
  1. VIOXX [Suspect]
     Indication: PAIN
     Route: 048
     Dates: start: 20031201, end: 20041001
  2. VIOXX [Concomitant]
     Route: 048
  3. DURAGESIC-100 [Concomitant]
     Indication: PAIN
     Route: 065
  4. LORTAB [Concomitant]
     Indication: PAIN
     Route: 065
  5. ELAVIL [Suspect]
     Indication: PAIN
     Route: 065
  6. DILAUDID [Concomitant]
     Indication: PAIN
     Route: 065

REACTIONS (32)
  - ANGINA PECTORIS [None]
  - ATELECTASIS [None]
  - BLOOD GLUCOSE INCREASED [None]
  - BONE NEOPLASM MALIGNANT [None]
  - BRONCHITIS [None]
  - BURSITIS [None]
  - CARDIO-RESPIRATORY ARREST [None]
  - CHRONIC OBSTRUCTIVE PULMONARY DISEASE [None]
  - CONFUSIONAL STATE [None]
  - CORONARY ARTERY STENOSIS [None]
  - CYST [None]
  - DEPRESSION [None]
  - DRUG HYPERSENSITIVITY [None]
  - EMOTIONAL DISTRESS [None]
  - GASTROOESOPHAGEAL REFLUX DISEASE [None]
  - HALLUCINATION [None]
  - HYPOTENSION [None]
  - JOINT SPRAIN [None]
  - MENTAL STATUS CHANGES [None]
  - METASTASIS [None]
  - MITRAL VALVE INCOMPETENCE [None]
  - MYOCARDIAL INFARCTION [None]
  - OVERDOSE [None]
  - PAIN [None]
  - PNEUMONIA ASPIRATION [None]
  - PSYCHOTIC DISORDER [None]
  - RESPIRATORY DISTRESS [None]
  - RESPIRATORY FAILURE [None]
  - SINUS TACHYCARDIA [None]
  - TORSADE DE POINTES [None]
  - TREMOR [None]
  - TRICUSPID VALVE INCOMPETENCE [None]
